APPROVED DRUG PRODUCT: TOPIRAMATE
Active Ingredient: TOPIRAMATE
Strength: 25MG
Dosage Form/Route: CAPSULE;ORAL
Application: A076575 | Product #002
Applicant: TEVA PHARMACEUTICALS USA INC
Approved: Apr 17, 2009 | RLD: No | RS: No | Type: DISCN